FAERS Safety Report 7291150-3 (Version None)
Quarter: 2011Q1

REPORT INFORMATION
  Report Type: 
  Country: None (occurrence: None)
  Receive Date: 20110214
  Receipt Date: 20110203
  Transmission Date: 20110831
  Serious: Yes (Hospitalization, Other)
  Sender: FDA-Public Use
  Company Number: AT-ELI_LILLY_AND_COMPANY-AT201102001467

PATIENT
  Sex: Female

DRUGS (4)
  1. CALCIUM [Concomitant]
     Dosage: UNK, UNKNOWN
     Route: 065
  2. VITAMIN D [Concomitant]
     Dosage: UNK, UNKNOWN
     Route: 065
  3. FORTEO [Suspect]
     Indication: OSTEOPOROSIS
     Dosage: UNK UNK, DAILY (1/D)
     Route: 058
     Dates: start: 20100203, end: 20110101
  4. FORTEO [Suspect]
     Dosage: UNK, DAILY (1/D)
     Route: 058

REACTIONS (4)
  - PANCREATITIS [None]
  - PYREXIA [None]
  - PNEUMONIA [None]
  - FEELING ABNORMAL [None]
